FAERS Safety Report 13803809 (Version 2)
Quarter: 2017Q3

REPORT INFORMATION
  Report Type: Report from Study
  Country: None (occurrence: FR)
  Receive Date: 20170728
  Receipt Date: 20170901
  Transmission Date: 20171127
  Serious: Yes (Hospitalization, Other)
  Sender: FDA-Public Use
  Company Number: FR-ABBVIE-17K-056-2052830-00

PATIENT
  Age: 4 Year
  Sex: Female

DRUGS (2)
  1. HUMIRA [Suspect]
     Active Substance: ADALIMUMAB
     Indication: JUVENILE IDIOPATHIC ARTHRITIS
     Route: 058
     Dates: start: 20170401
  2. JOSACINE [Suspect]
     Active Substance: JOSAMYCIN
     Indication: INFECTION
     Route: 065

REACTIONS (8)
  - Rash macular [Recovering/Resolving]
  - Mobility decreased [Not Recovered/Not Resolved]
  - Abdominal distension [Recovering/Resolving]
  - Delirium [Not Recovered/Not Resolved]
  - Fatigue [Unknown]
  - Productive cough [Not Recovered/Not Resolved]
  - Pyrexia [Not Recovered/Not Resolved]
  - Infection [Recovering/Resolving]

NARRATIVE: CASE EVENT DATE: 201707
